FAERS Safety Report 12885298 (Version 1)
Quarter: 2016Q4

REPORT INFORMATION
  Report Type: Spontaneous
  Country: US (occurrence: US)
  Receive Date: 20161025
  Receipt Date: 20161025
  Transmission Date: 20170207
  Serious: Yes (Death)
  Sender: FDA-Public Use
  Company Number: None

PATIENT
  Age: 55 Year
  Sex: Female

DRUGS (1)
  1. MYOBLOC [Suspect]
     Active Substance: RIMABOTULINUMTOXINB
     Indication: SALIVARY GLAND DISORDER
     Dosage: AS DIRECTED EVERY 3 MONTHS IM
     Route: 030
     Dates: start: 20160415, end: 201609

REACTIONS (1)
  - Disease complication [None]

NARRATIVE: CASE EVENT DATE: 2016
